FAERS Safety Report 8252434-5 (Version None)
Quarter: 2012Q2

REPORT INFORMATION
  Report Type: 
  Country: None (occurrence: None)
  Receive Date: 20120402
  Receipt Date: 20110630
  Transmission Date: 20120825
  Serious: No
  Sender: FDA-Public Use
  Company Number: US-ABBOTT-11P-163-0835708-00

PATIENT
  Sex: Male
  Weight: 99.88 kg

DRUGS (3)
  1. SUBUTEX [Concomitant]
     Indication: DRUG DEPENDENCE
  2. ANDROGEL [Suspect]
     Indication: BLOOD TESTOSTERONE DECREASED
     Dosage: 4 PUMPS DAILY
     Dates: start: 20101101, end: 20110601
  3. ANDROGEL [Suspect]
     Dosage: 8 PUMPS DAILY
     Dates: start: 20110601

REACTIONS (1)
  - APPLICATION SITE RASH [None]
